FAERS Safety Report 26208310 (Version 1)
Quarter: 2025Q4

REPORT INFORMATION
  Report Type: Spontaneous
  Country: AU (occurrence: AU)
  Receive Date: 20251229
  Receipt Date: 20251229
  Transmission Date: 20260117
  Serious: Yes (Hospitalization, Other)
  Sender: SANDOZ
  Company Number: AU-JNJFOC-20251040068

PATIENT
  Sex: Female

DRUGS (3)
  1. RISPERIDONE [Suspect]
     Active Substance: RISPERIDONE
     Indication: Breast cancer
     Dosage: UNK
  2. RISPERIDONE [Suspect]
     Active Substance: RISPERIDONE
     Dosage: UNK
  3. PREDNISOLONE [Concomitant]
     Active Substance: PREDNISOLONE
     Indication: Pain
     Dosage: UNK

REACTIONS (5)
  - Abnormal behaviour [Unknown]
  - Hallucination [Unknown]
  - Motor dysfunction [Not Recovered/Not Resolved]
  - Seizure [Unknown]
  - Off label use [Unknown]
